FAERS Safety Report 13241646 (Version 1)
Quarter: 2017Q1

REPORT INFORMATION
  Report Type: Spontaneous
  Country: US (occurrence: US)
  Receive Date: 20170217
  Receipt Date: 20170217
  Transmission Date: 20170428
  Serious: No
  Sender: FDA-Public Use
  Company Number: US-PFIZER INC-2017063908

PATIENT
  Age: 77 Year
  Sex: Female

DRUGS (2)
  1. TAMOXIFEN [Concomitant]
     Active Substance: TAMOXIFEN
     Dosage: 20 MG, DAILY
  2. IBRANCE [Suspect]
     Active Substance: PALBOCICLIB
     Indication: BREAST CANCER FEMALE
     Dosage: 125 MG, CYCLIC (1X/DAY FOR 21 DAYS ON AND 7 DAYS OFF)
     Dates: start: 20170120, end: 20170209

REACTIONS (6)
  - Myalgia [Unknown]
  - Throat irritation [Recovering/Resolving]
  - Rhinorrhoea [Unknown]
  - Ocular discomfort [Unknown]
  - Fatigue [Unknown]
  - Dizziness [Unknown]
